FAERS Safety Report 7785420-X (Version None)
Quarter: 2011Q3

REPORT INFORMATION
  Report Type: 
  Country: None (occurrence: None)
  Receive Date: 20110929
  Receipt Date: 20110915
  Transmission Date: 20111222
  Serious: Yes (Hospitalization)
  Sender: FDA-Public Use
  Company Number: FR-AMGEN-FRASP2011008379

PATIENT
  Age: 30 Year
  Sex: Female
  Weight: 54 kg

DRUGS (7)
  1. ENBREL [Suspect]
     Indication: ANKYLOSING SPONDYLITIS
     Dosage: UNK
     Dates: start: 20040901, end: 20100901
  2. ENBREL [Suspect]
     Dosage: 25 MG, 2 TIMES/WK
     Dates: start: 20110214, end: 20110518
  3. ADVIL LIQUI-GELS [Concomitant]
     Indication: ANKYLOSING SPONDYLITIS
     Dosage: 200 MG, 3X/DAY
     Route: 048
     Dates: start: 20101215, end: 20110128
  4. FERROUS SULFATE TAB [Concomitant]
     Indication: PROPHYLAXIS
     Dosage: 50 MG, 1X/DAY
     Route: 048
     Dates: start: 20110110, end: 20110120
  5. PREDNISONE [Concomitant]
     Indication: ANKYLOSING SPONDYLITIS
     Dosage: 20 MG, 1X/DAY
     Route: 048
     Dates: start: 20110129, end: 20110214
  6. TARDYFERON                         /00023503/ [Concomitant]
     Indication: PROPHYLAXIS
     Dosage: 80 MG, 2X/DAY
     Route: 048
     Dates: start: 20110201, end: 20110630
  7. ACETAMINOPHEN [Concomitant]
     Indication: ANKYLOSING SPONDYLITIS
     Dosage: 1000 MG, 3X TO 4X/DAY
     Route: 048
     Dates: start: 20101215, end: 20110420

REACTIONS (2)
  - THREATENED LABOUR [None]
  - BONE PAIN [None]
